FAERS Safety Report 22198142 (Version 1)
Quarter: 2023Q2

REPORT INFORMATION
  Report Type: Spontaneous
  Country: ES (occurrence: ES)
  Receive Date: 20230411
  Receipt Date: 20230411
  Transmission Date: 20230722
  Serious: Yes (Hospitalization)
  Sender: FDA-Public Use
  Company Number: None

PATIENT
  Age: 61 Year
  Sex: Female
  Weight: 59 kg

DRUGS (5)
  1. DOXORUBICIN [Interacting]
     Active Substance: DOXORUBICIN
     Indication: Invasive ductal breast carcinoma
     Dosage: 60 MG/M2: 1ST DOSE 01/17/2023 (83MG) 2ND DOSE 02/07/2023 (72MG)
     Route: 065
     Dates: start: 20230117, end: 20230207
  2. GENOXAL [Interacting]
     Active Substance: CYCLOPHOSPHAMIDE
     Indication: Invasive ductal breast carcinoma
     Dosage: 600MG/M2: 1ST DOSE 01/17/2023 (831MG) 2ND DOSE 02/07/2023 (718MG)
     Route: 065
     Dates: start: 20230117, end: 20230207
  3. DEXAMETHASONE [Concomitant]
     Active Substance: DEXAMETHASONE
     Indication: Product used for unknown indication
     Dosage: 12 MG IV IN A SINGLE DOSE ON 01/17/2023 AND 02/07/2023,  DEXAMETASONA (722A)
     Route: 042
     Dates: start: 20230117, end: 20230207
  4. FOSAPREPITANT DIMEGLUMINE [Concomitant]
     Active Substance: FOSAPREPITANT DIMEGLUMINE
     Indication: Product used for unknown indication
     Dosage: 1 VIAL,  150 MG IV IN A SINGLE DOSE ON 01/17/2023 AND 02/07/2023,
     Route: 042
     Dates: start: 20230117, end: 20230207
  5. ONDANSETRON [Concomitant]
     Active Substance: ONDANSETRON
     Indication: Product used for unknown indication
     Dosage: 16 MG IV IN A SINGLE DOSE 01/17/2023 AND 02/07/2023,  ONDANSETRON (2575A)
     Route: 042
     Dates: start: 20230117, end: 20230207

REACTIONS (4)
  - Febrile neutropenia [Recovered/Resolved]
  - Anaemia [Recovered/Resolved]
  - Enteritis [Recovered/Resolved]
  - Drug interaction [Unknown]

NARRATIVE: CASE EVENT DATE: 20230219
